FAERS Safety Report 18088833 (Version 3)
Quarter: 2021Q2

REPORT INFORMATION
  Report Type: Spontaneous
  Country: US (occurrence: US)
  Receive Date: 20200729
  Receipt Date: 20210623
  Transmission Date: 20210717
  Serious: No
  Sender: FDA-Public Use
  Company Number: US-HORIZON-DUE-0216-2020

PATIENT
  Sex: Female

DRUGS (1)
  1. DUEXIS [Suspect]
     Active Substance: FAMOTIDINE\IBUPROFEN
     Indication: PSORIATIC ARTHROPATHY
     Dosage: AS NEEDED

REACTIONS (3)
  - Blood immunoglobulin A increased [Unknown]
  - Arthritis [Unknown]
  - Off label use [Unknown]
